FAERS Safety Report 10966277 (Version 1)
Quarter: 2015Q1

REPORT INFORMATION
  Report Type: Spontaneous
  Country: US (occurrence: None)
  Receive Date: 20150327
  Receipt Date: 20150327
  Transmission Date: 20150721
  Serious: Yes (Other)
  Sender: FDA-Public Use
  Company Number: None

PATIENT
  Age: 62 Year
  Sex: Male
  Weight: 97.52 kg

DRUGS (2)
  1. OMEPRAZOLE 20 MG SANDOZ [Suspect]
     Active Substance: OMEPRAZOLE
     Indication: GASTROOESOPHAGEAL REFLUX DISEASE
     Dosage: 1 TAB PO BID ORAL
     Route: 048
     Dates: start: 20150225, end: 20150305
  2. OMEPRAZOLE 20 MG SANDOZ [Suspect]
     Active Substance: OMEPRAZOLE
     Indication: GASTROOESOPHAGEAL SPHINCTER INSUFFICIENCY
     Dosage: 1 TAB PO BID ORAL
     Route: 048
     Dates: start: 20150225, end: 20150305

REACTIONS (2)
  - Product substitution issue [None]
  - Product quality issue [None]

NARRATIVE: CASE EVENT DATE: 20150305
